FAERS Safety Report 13830726 (Version 1)
Quarter: 2017Q3

REPORT INFORMATION
  Report Type: Spontaneous
  Country: CN (occurrence: CN)
  Receive Date: 20170803
  Receipt Date: 20170803
  Transmission Date: 20171127
  Serious: Yes (Other)
  Sender: FDA-Public Use
  Company Number: CN-MYLANLABS-2017M1047422

PATIENT

DRUGS (3)
  1. ENDOSTATIN [Suspect]
     Active Substance: ENDOSTATIN
     Indication: PRODUCT USED FOR UNKNOWN INDICATION
     Dosage: 15MG ON DAYS 1 TO 14 OF A 21-DAY CYCLE; 4 CYCLES
     Route: 065
  2. EPIRUBICIN [Suspect]
     Active Substance: EPIRUBICIN
     Indication: PANCREATIC NEUROENDOCRINE TUMOUR
     Dosage: 80MG ON DAY 1 OF A 21-DAY CYCLE; 4 CYCLES
     Route: 042
  3. IFOSFAMIDE. [Suspect]
     Active Substance: IFOSFAMIDE
     Indication: PRODUCT USED FOR UNKNOWN INDICATION
     Dosage: 6.0G ON DAYS 1 TO 4 OF A 21-DAY CYCLE; 4 CYCLES
     Route: 042

REACTIONS (2)
  - Bone marrow failure [Unknown]
  - Gastrointestinal disorder [Unknown]
